FAERS Safety Report 5509280-2 (Version None)
Quarter: 2007Q4

REPORT INFORMATION
  Report Type: 
  Country: None (occurrence: None)
  Receive Date: 20071107
  Receipt Date: 20071026
  Transmission Date: 20080405
  Serious: Yes (Hospitalization)
  Sender: FDA-Public Use
  Company Number: CH-BAYER-200716393GDS

PATIENT
  Age: 84 Year
  Sex: Male

DRUGS (2)
  1. ASPIRIN [Suspect]
     Indication: MYOCARDIAL ISCHAEMIA
     Route: 048
     Dates: end: 20071001
  2. PHENPROCOUMON [Suspect]
     Indication: PULMONARY EMBOLISM
     Route: 048
     Dates: start: 20070901, end: 20071001

REACTIONS (2)
  - RENAL FAILURE [None]
  - RETROPERITONEAL HAEMORRHAGE [None]
